FAERS Safety Report 23568189 (Version 4)
Quarter: 2025Q3

REPORT INFORMATION
  Report Type: Report from Study
  Country: BR (occurrence: BR)
  Receive Date: 20240226
  Receipt Date: 20250915
  Transmission Date: 20251020
  Serious: Yes (Other)
  Sender: TAKEDA
  Company Number: BR-TAKEDA-2023TUS078238

PATIENT
  Age: 67 Year
  Sex: Male

DRUGS (4)
  1. VEDOLIZUMAB [Suspect]
     Active Substance: VEDOLIZUMAB
     Indication: Colitis ulcerative
  2. MESALAMINE [Suspect]
     Active Substance: MESALAMINE
     Indication: Product used for unknown indication
  3. TRIMEBUTINE [Concomitant]
     Active Substance: TRIMEBUTINE
  4. FAMOTIDINE [Concomitant]
     Active Substance: FAMOTIDINE

REACTIONS (9)
  - Colitis ulcerative [Unknown]
  - Proctalgia [Not Recovered/Not Resolved]
  - Inappropriate schedule of product administration [Unknown]
  - Product availability issue [Unknown]
  - Fall [Unknown]
  - Haemorrhoids [Unknown]
  - Malaise [Unknown]
  - Influenza [Unknown]
  - Sinus congestion [Recovered/Resolved]

NARRATIVE: CASE EVENT DATE: 20230703
